FAERS Safety Report 11223717 (Version 2)
Quarter: 2015Q3

REPORT INFORMATION
  Report Type: Spontaneous
  Country: FR (occurrence: FR)
  Receive Date: 20150629
  Receipt Date: 20150918
  Transmission Date: 20151125
  Serious: Yes (Hospitalization, Disabling)
  Sender: FDA-Public Use
  Company Number: FR-ORION CORPORATION ORION PHARMA-ENTC2015-0345

PATIENT
  Age: 78 Year
  Sex: Male
  Weight: 65 kg

DRUGS (5)
  1. NEUPRO [Concomitant]
     Active Substance: ROTIGOTINE
     Route: 065
     Dates: start: 20150506
  2. STALEVO [Suspect]
     Active Substance: CARBIDOPA\ENTACAPONE\LEVODOPA
     Indication: PARKINSON^S DISEASE
     Dosage: 150/37.5/200 MG (MORNING), 100/25/200 MG (10H-NOON-16H-EVENING)
     Route: 048
     Dates: start: 201503
  3. SINEMET [Concomitant]
     Active Substance: CARBIDOPA\LEVODOPA
     Route: 065
     Dates: start: 20150506
  4. STALEVO [Suspect]
     Active Substance: CARBIDOPA\ENTACAPONE\LEVODOPA
     Dosage: 125/31.25/200 MG
     Route: 048
     Dates: start: 20150506
  5. STALEVO [Suspect]
     Active Substance: CARBIDOPA\ENTACAPONE\LEVODOPA
     Dosage: 150 MG AT 7 AM, 125 MG AT 10 AM, 150 MG AT 1 PM, 125 MG AT 4 PM AND 150 MG AT 7 PM
     Route: 048
     Dates: start: 20150618

REACTIONS (6)
  - General physical condition abnormal [Recovering/Resolving]
  - Thinking abnormal [Unknown]
  - Product commingling [Unknown]
  - Parkinson^s disease [Not Recovered/Not Resolved]
  - Fall [Recovered/Resolved]
  - Product quality issue [Unknown]

NARRATIVE: CASE EVENT DATE: 20150617
